FAERS Safety Report 4611031-0 (Version None)
Quarter: 2005Q1

REPORT INFORMATION
  Report Type: 
  Country: None (occurrence: None)
  Receive Date: 20050317
  Receipt Date: 20050309
  Transmission Date: 20050727
  Serious: Yes (Hospitalization)
  Sender: FDA-Public Use
  Company Number: 200512244GDDC

PATIENT
  Age: 78 Year
  Sex: Female

DRUGS (5)
  1. CLEXANE [Suspect]
     Indication: ANGINA UNSTABLE
     Route: 058
     Dates: start: 20001111, end: 20001114
  2. MULTIFORT [Concomitant]
     Route: 048
     Dates: start: 19990101
  3. GARLICIN [Concomitant]
     Route: 048
     Dates: start: 19990101
  4. FRUSEMIDE [Concomitant]
     Route: 048
     Dates: start: 20001111, end: 20001115
  5. LOSARTAN POTASSIUM [Concomitant]
     Route: 048
     Dates: start: 20001111, end: 20001115

REACTIONS (2)
  - HAEMATOMA [None]
  - HYPOTENSION [None]
